FAERS Safety Report 25599236 (Version 1)
Quarter: 2025Q3

REPORT INFORMATION
  Report Type: Spontaneous
  Country: US (occurrence: US)
  Receive Date: 20250724
  Receipt Date: 20250724
  Transmission Date: 20251021
  Serious: Yes (Hospitalization)
  Sender: DOUGLAS PHARMACEUTICALS
  Company Number: US-DOUGLAS PHARMACEUTICALS US-2025DGL00300

PATIENT
  Age: 50 Year
  Sex: Female

DRUGS (3)
  1. CLOZAPINE [Suspect]
     Active Substance: CLOZAPINE
  2. CLOZAPINE [Suspect]
     Active Substance: CLOZAPINE
     Dosage: 12.5 MG, 1X/DAY
  3. CLOZAPINE [Suspect]
     Active Substance: CLOZAPINE

REACTIONS (2)
  - Withdrawal catatonia [Recovered/Resolved]
  - Ileus [Unknown]
